FAERS Safety Report 20983085 (Version 4)
Quarter: 2022Q3

REPORT INFORMATION
  Report Type: Report from Study
  Country: FR (occurrence: FR)
  Receive Date: 20220620
  Receipt Date: 20220808
  Transmission Date: 20221027
  Serious: Yes (Other)
  Sender: FDA-Public Use
  Company Number: FR-PFM-2022-05018

PATIENT
  Age: 76 Year
  Sex: Female

DRUGS (8)
  1. ENCORAFENIB [Suspect]
     Active Substance: ENCORAFENIB
     Indication: Non-small cell lung cancer metastatic
     Dosage: UNK
     Route: 048
     Dates: start: 20220608, end: 20220608
  2. BINIMETINIB [Suspect]
     Active Substance: BINIMETINIB
     Indication: Non-small cell lung cancer metastatic
     Dosage: UNK
     Route: 048
     Dates: start: 20220608, end: 20220608
  3. PERINDOPRIL [Concomitant]
     Active Substance: PERINDOPRIL
     Dosage: UNK
     Route: 065
  4. OMEPRAZOLE [Concomitant]
     Active Substance: OMEPRAZOLE
     Dosage: UNK
     Route: 065
  5. LEVOCETIRIZINE DIHYDROCHLORIDE [Concomitant]
     Active Substance: LEVOCETIRIZINE DIHYDROCHLORIDE
     Dosage: UNK
     Route: 065
  6. OXYCONTIN [Concomitant]
     Active Substance: OXYCODONE HYDROCHLORIDE
     Dosage: UNK
     Route: 065
  7. OXYCODONE HYDROCHLORIDE [Concomitant]
     Active Substance: OXYCODONE HYDROCHLORIDE
     Dosage: UNK
     Route: 065
  8. ACETAMINOPHEN [Concomitant]
     Active Substance: ACETAMINOPHEN
     Dosage: UNK
     Route: 065

REACTIONS (1)
  - Serous retinal detachment [Recovered/Resolved]

NARRATIVE: CASE EVENT DATE: 20220609
